FAERS Safety Report 5961905-3 (Version None)
Quarter: 2008Q4

REPORT INFORMATION
  Report Type: 
  Country: None (occurrence: None)
  Receive Date: 20081114
  Receipt Date: 20080910
  Transmission Date: 20090506
  Serious: Yes (Hospitalization)
  Sender: FDA-Public Use
  Company Number: WAES 0809USA01560

PATIENT
  Age: 62 Year
  Sex: Female

DRUGS (3)
  1. ISENTRESS [Suspect]
     Indication: HIV INFECTION
     Dosage: 400 MG/BID/PO
     Route: 048
  2. PREZISTA [Concomitant]
  3. T-20 [Concomitant]

REACTIONS (4)
  - FATIGUE [None]
  - MALAISE [None]
  - RASH [None]
  - RASH MACULAR [None]
